FAERS Safety Report 6935312-0 (Version None)
Quarter: 2010Q3

REPORT INFORMATION
  Report Type: 
  Country: None (occurrence: None)
  Receive Date: 20100822
  Receipt Date: 20100811
  Transmission Date: 20110219
  Serious: Yes (Life-Threatening, Hospitalization, Other)
  Sender: FDA-Public Use
  Company Number: PHHY2010CA53210

PATIENT
  Sex: Male

DRUGS (5)
  1. CLOZARIL [Suspect]
     Dosage: UNK
     Dates: start: 20100519, end: 20100723
  2. CITALOPRAM HYDROBROMIDE [Concomitant]
  3. PANTOPRAZOLE [Concomitant]
  4. FLOMAX [Concomitant]
  5. IMOVANE [Concomitant]

REACTIONS (10)
  - AGITATION [None]
  - CONFUSIONAL STATE [None]
  - DEPRESSION [None]
  - DROOLING [None]
  - HEART RATE INCREASED [None]
  - MENTAL IMPAIRMENT [None]
  - OBSESSIVE-COMPULSIVE DISORDER [None]
  - PYREXIA [None]
  - SCHIZOPHRENIA [None]
  - SINUSITIS [None]
